FAERS Safety Report 7493020-4 (Version None)
Quarter: 2011Q2

REPORT INFORMATION
  Report Type: 
  Country: None (occurrence: None)
  Receive Date: 20110520
  Receipt Date: 20110516
  Transmission Date: 20111010
  Serious: No
  Sender: FDA-Public Use
  Company Number: US-PFIZER INC-2011090283

PATIENT
  Sex: Female
  Weight: 67 kg

DRUGS (2)
  1. LATANOPROST [Suspect]
     Dosage: UNK
  2. LATANOPROST [Suspect]
     Indication: GLAUCOMA
     Dosage: ONE DROP IN EACH EYE, ONCE A DAY
     Route: 047
     Dates: start: 20110424, end: 20110424

REACTIONS (2)
  - DRUG INEFFECTIVE [None]
  - EYELIDS PRURITUS [None]
